FAERS Safety Report 5897979-8 (Version None)
Quarter: 2008Q3

REPORT INFORMATION
  Report Type: 
  Country: None (occurrence: None)
  Receive Date: 20080925
  Receipt Date: 20080919
  Transmission Date: 20090109
  Serious: Yes (Other)
  Sender: FDA-Public Use
  Company Number: B0538477A

PATIENT
  Age: 56 Year
  Sex: Female

DRUGS (8)
  1. AVANDARYL [Suspect]
     Dosage: 1000MG TWICE PER DAY
  2. BACTRIM DS [Suspect]
  3. VERAPAMIL [Concomitant]
  4. VALSARTAN [Concomitant]
  5. ATENOLOL [Concomitant]
  6. ATORVASTATIN CALCIUM [Concomitant]
  7. ISOSORBIDE [Concomitant]
  8. ASPIRIN [Concomitant]

REACTIONS (6)
  - ASTHENIA [None]
  - DIZZINESS [None]
  - DRUG INTERACTION [None]
  - HYPOGLYCAEMIA [None]
  - PRESYNCOPE [None]
  - TREMOR [None]
